FAERS Safety Report 4891965-2 (Version None)
Quarter: 2006Q1

REPORT INFORMATION
  Report Type: 
  Country: None (occurrence: None)
  Receive Date: 20060123
  Receipt Date: 20060110
  Transmission Date: 20060701
  Serious: Yes (Death, Hospitalization, Other)
  Sender: FDA-Public Use
  Company Number: IT200512002407

PATIENT
  Age: 52 Year
  Sex: Male

DRUGS (7)
  1. ALIMTA [Suspect]
     Indication: PLEURAL MESOTHELIOMA MALIGNANT ADVANCED
     Dates: start: 20051118, end: 20051204
  2. FOLIC ACID [Concomitant]
  3. VITAMIN B12 [Concomitant]
  4. DILTIAZEM HYDROCHLORIDE [Concomitant]
  5. LUVION (CANRENOIC ACID) [Concomitant]
  6. FUROSEMIDE [Concomitant]
  7. UNIPRIL (RAMIPRIL) [Concomitant]

REACTIONS (5)
  - CARDIAC ARREST [None]
  - CARDIOVASCULAR DISORDER [None]
  - DISEASE PROGRESSION [None]
  - INTESTINAL OBSTRUCTION [None]
  - MUCOSAL INFLAMMATION [None]
